FAERS Safety Report 8572392-3 (Version None)
Quarter: 2012Q3

REPORT INFORMATION
  Report Type: 
  Country: None (occurrence: None)
  Receive Date: 20120806
  Receipt Date: 20120730
  Transmission Date: 20120928
  Serious: Yes (Other)
  Sender: FDA-Public Use
  Company Number: JP-ASTRAZENECA-2012SE54518

PATIENT
  Age: 83 Year
  Sex: Male
  Weight: 95 kg

DRUGS (8)
  1. SPIRONOLACTONE [Concomitant]
     Indication: ATRIAL FIBRILLATION
     Route: 048
  2. WARFARIN SODIUM [Concomitant]
     Indication: ATRIAL FIBRILLATION
     Route: 048
  3. ISOSORBIDE [Concomitant]
     Indication: ATRIAL FIBRILLATION
     Route: 048
  4. PYRIDOXINE HCL [Concomitant]
     Indication: ATRIAL FIBRILLATION
     Route: 048
  5. CANDESARTAN CILEXETIL [Suspect]
     Indication: PRODUCT USED FOR UNKNOWN INDICATION
     Route: 048
     Dates: start: 20110701, end: 20120701
  6. CHLORAMINOPHENE [Concomitant]
     Indication: CARDIAC FAILURE CHRONIC
     Route: 048
  7. FUROSEMIDE [Concomitant]
     Indication: ATRIAL FIBRILLATION
     Route: 048
  8. MESALAMINE [Concomitant]
     Indication: PRODUCT USED FOR UNKNOWN INDICATION
     Route: 065

REACTIONS (7)
  - SUICIDAL IDEATION [None]
  - MYALGIA [None]
  - GAIT DISTURBANCE [None]
  - LOSS OF PROPRIOCEPTION [None]
  - FATIGUE [None]
  - DEPRESSION [None]
  - ARTHRALGIA [None]
